FAERS Safety Report 13117354 (Version 1)
Quarter: 2017Q1

REPORT INFORMATION
  Report Type: Spontaneous
  Country: FR (occurrence: FR)
  Receive Date: 20170116
  Receipt Date: 20170116
  Transmission Date: 20170428
  Serious: Yes (Hospitalization, Other)
  Sender: FDA-Public Use
  Company Number: FR-ASTELLAS-2017US000989

PATIENT
  Age: 50 Year
  Sex: Male

DRUGS (4)
  1. TACROLIMUS. [Suspect]
     Active Substance: TACROLIMUS
     Indication: HEART TRANSPLANT
     Dosage: UNK UNK, UNKNOWN FREQ.
     Route: 065
  2. EVEROLIMUS [Suspect]
     Active Substance: EVEROLIMUS
     Indication: CYTOMEGALOVIRUS INFECTION
     Dosage: UNK UNK, UNKNOWN FREQ.
     Route: 065
  3. BRINCIDOFOVIR [Concomitant]
     Active Substance: BRINCIDOFOVIR
     Indication: CYTOMEGALOVIRUS INFECTION
     Route: 042
     Dates: start: 201509
  4. FOSCARNET [Suspect]
     Active Substance: FOSCARNET
     Indication: PRODUCT USED FOR UNKNOWN INDICATION
     Dosage: UNK UNK, UNKNOWN FREQ.
     Route: 042

REACTIONS (6)
  - Chronic kidney disease [Unknown]
  - Overdose [Unknown]
  - Cytomegalovirus infection [Unknown]
  - Acute kidney injury [Unknown]
  - Thrombotic microangiopathy [Unknown]
  - Roseolovirus test positive [Unknown]

NARRATIVE: CASE EVENT DATE: 201504
